FAERS Safety Report 9219701 (Version 1)
Quarter: 2013Q2

REPORT INFORMATION
  Report Type: Spontaneous
  Country: FR (occurrence: FR)
  Receive Date: 20130409
  Receipt Date: 20130409
  Transmission Date: 20140414
  Serious: Yes (Hospitalization, Other)
  Sender: FDA-Public Use
  Company Number: FR-ROCHE-1206313

PATIENT
  Sex: Male

DRUGS (5)
  1. ACTILYSE [Suspect]
     Indication: CEREBROVASCULAR ACCIDENT
     Route: 065
     Dates: start: 20101031
  2. KARDEGIC [Concomitant]
     Indication: CEREBROVASCULAR ACCIDENT
  3. TAHOR [Concomitant]
  4. INEXIUM [Concomitant]
  5. DAFALGAN [Concomitant]

REACTIONS (7)
  - Abdominal pain upper [Unknown]
  - Cholestasis [Unknown]
  - Hepatocellular injury [Unknown]
  - Renal failure acute [Unknown]
  - Thrombocytopenia [Unknown]
  - Haemolytic anaemia [Unknown]
  - Eosinophilia [Unknown]
